FAERS Safety Report 18695101 (Version 1)
Quarter: 2021Q1

REPORT INFORMATION
  Report Type: Spontaneous
  Country: US (occurrence: US)
  Receive Date: 20210104
  Receipt Date: 20210104
  Transmission Date: 20210419
  Serious: Yes (Hospitalization)
  Sender: FDA-Public Use
  Company Number: US-MYLANLABS-2020M1106534

PATIENT
  Age: 86 Year
  Sex: Female

DRUGS (1)
  1. HEPARIN [Suspect]
     Active Substance: HEPARIN SODIUM
     Indication: ANTICOAGULANT THERAPY
     Dosage: INFUSION ADMINISTRATION
     Route: 050

REACTIONS (3)
  - Oesophageal intramural haematoma [Unknown]
  - Hiatus hernia [Unknown]
  - Haemothorax [Unknown]
